FAERS Safety Report 6174963-0 (Version None)
Quarter: 2009Q2

REPORT INFORMATION
  Report Type: 
  Country: None (occurrence: None)
  Receive Date: 20090430
  Receipt Date: 20081027
  Transmission Date: 20091009
  Serious: No
  Sender: FDA-Public Use
  Company Number: BR-ASTRAZENECA-2008UW24122

PATIENT
  Age: 63 Year
  Sex: Male

DRUGS (1)
  1. NEXIUM [Suspect]
     Indication: OESOPHAGITIS
     Route: 048
     Dates: start: 20080901

REACTIONS (3)
  - DRY MOUTH [None]
  - HEADACHE [None]
  - THINKING ABNORMAL [None]
